FAERS Safety Report 6756181-8 (Version None)
Quarter: 2010Q2

REPORT INFORMATION
  Report Type: 
  Country: None (occurrence: None)
  Receive Date: 20100604
  Receipt Date: 20100525
  Transmission Date: 20101027
  Serious: Yes (Other)
  Sender: FDA-Public Use
  Company Number: PHHY2010JP34992

PATIENT

DRUGS (1)
  1. TEGRETOL [Suspect]

REACTIONS (1)
  - EPILEPSY [None]
